FAERS Safety Report 8091260-7 (Version None)
Quarter: 2012Q1

REPORT INFORMATION
  Report Type: 
  Country: None (occurrence: None)
  Receive Date: 20120129
  Receipt Date: 20111017
  Transmission Date: 20120608
  Serious: No
  Sender: FDA-Public Use
  Company Number: US-ABBOTT-11P-163-0865337-00

PATIENT
  Sex: Female

DRUGS (4)
  1. EVISTA [Concomitant]
     Indication: BONE LOSS
  2. ZOMIG [Concomitant]
     Indication: MIGRAINE
     Dosage: PRN
  3. HUMIRA [Suspect]
     Indication: PSORIASIS
     Dosage: DAY ONE
     Route: 058
     Dates: start: 20111010, end: 20111017
  4. STEROID [Concomitant]
     Indication: PSORIASIS
     Dosage: USED ON HANDS AND FEET PRN
     Route: 061

REACTIONS (5)
  - NAUSEA [None]
  - FEELING ABNORMAL [None]
  - DIZZINESS [None]
  - VERTIGO [None]
  - MIGRAINE [None]
